FAERS Safety Report 20615896 (Version 6)
Quarter: 2022Q3

REPORT INFORMATION
  Report Type: Report from Study
  Country: US (occurrence: US)
  Receive Date: 20220321
  Receipt Date: 20220723
  Transmission Date: 20221026
  Serious: Yes (Hospitalization)
  Sender: FDA-Public Use
  Company Number: NVSC2022US062691

PATIENT
  Sex: Male

DRUGS (1)
  1. ENTRESTO [Suspect]
     Active Substance: SACUBITRIL\VALSARTAN
     Indication: Product used for unknown indication
     Dosage: UNK UNK, BID
     Route: 048
     Dates: start: 2017

REACTIONS (5)
  - Pyrexia [Recovering/Resolving]
  - Blood urine present [Recovering/Resolving]
  - Balance disorder [Unknown]
  - Back pain [Unknown]
  - Mobility decreased [Unknown]
